FAERS Safety Report 9224994 (Version 1)
Quarter: 2013Q2

REPORT INFORMATION
  Report Type: Spontaneous
  Country: US (occurrence: None)
  Receive Date: 20130410
  Receipt Date: 20130410
  Transmission Date: 20140414
  Serious: Yes (Death)
  Sender: FDA-Public Use
  Company Number: None

PATIENT
  Age: 79 Year
  Sex: Female

DRUGS (1)
  1. SMX/TMP [Suspect]
     Indication: URINARY TRACT INFECTION
     Dosage: ? ?  PO?DAYS
     Route: 048

REACTIONS (5)
  - General physical health deterioration [None]
  - Pancreatitis acute [None]
  - Hypotension [None]
  - Metabolic acidosis [None]
  - Multi-organ failure [None]
